APPROVED DRUG PRODUCT: SAPROPTERIN DIHYDROCHLORIDE
Active Ingredient: SAPROPTERIN DIHYDROCHLORIDE
Strength: 100MG/PACKET
Dosage Form/Route: POWDER;ORAL
Application: A207207 | Product #001 | TE Code: AB
Applicant: PH HEALTH LTD
Approved: Aug 20, 2019 | RLD: No | RS: No | Type: RX